FAERS Safety Report 6575819-1 (Version None)
Quarter: 2010Q1

REPORT INFORMATION
  Report Type: 
  Country: None (occurrence: None)
  Receive Date: 20100208
  Receipt Date: 20100208
  Transmission Date: 20100710
  Serious: Yes (Disabling)
  Sender: FDA-Public Use
  Company Number: None

PATIENT
  Age: 29 Year
  Sex: Female
  Weight: 56.6996 kg

DRUGS (2)
  1. LEVAQUIN [Suspect]
     Indication: SINUSITIS
     Dosage: 500MG 1XPER DAY PO
     Route: 048
     Dates: start: 20100125, end: 20100130
  2. NASONEX [Concomitant]

REACTIONS (4)
  - ANXIETY [None]
  - ARTHRALGIA [None]
  - INJURY [None]
  - TENDONITIS [None]
